FAERS Safety Report 5781931-7 (Version None)
Quarter: 2008Q2

REPORT INFORMATION
  Report Type: 
  Country: None (occurrence: None)
  Receive Date: 20080623
  Receipt Date: 20080611
  Transmission Date: 20081010
  Serious: Yes (Death, Life-Threatening, Hospitalization)
  Sender: FDA-Public Use
  Company Number: B0525083A

PATIENT
  Age: 82 Year
  Sex: Male

DRUGS (3)
  1. AUGMENTIN '125' [Suspect]
     Indication: LUNG DISORDER
     Dosage: 3G PER DAY
     Route: 042
     Dates: start: 20080508, end: 20080513
  2. AUGMENTIN '125' [Suspect]
     Indication: LUNG DISORDER
     Route: 048
     Dates: start: 20080513, end: 20080526
  3. CIPROFLOXACIN HCL [Suspect]
     Indication: LUNG DISORDER
     Route: 048
     Dates: start: 20080508, end: 20080526

REACTIONS (9)
  - ABDOMINAL PAIN [None]
  - CONJUNCTIVITIS [None]
  - EOSINOPHILIA [None]
  - GINGIVAL BLEEDING [None]
  - MUCOUS MEMBRANE DISORDER [None]
  - PRURITUS [None]
  - RASH [None]
  - RENAL FAILURE [None]
  - STEVENS-JOHNSON SYNDROME [None]
